FAERS Safety Report 7902263-4 (Version None)
Quarter: 2011Q4

REPORT INFORMATION
  Report Type: 
  Country: None (occurrence: None)
  Receive Date: 20111108
  Receipt Date: 20111031
  Transmission Date: 20120403
  Serious: Yes (Hospitalization)
  Sender: FDA-Public Use
  Company Number: GXKR2011DE03166

PATIENT
  Age: 76 Year
  Sex: Male

DRUGS (1)
  1. DICLO 1A PHARMA [Suspect]
     Dosage: 50 MG, UNK
     Route: 048

REACTIONS (2)
  - CIRCULATORY COLLAPSE [None]
  - BLOOD PRESSURE DECREASED [None]
